FAERS Safety Report 8789082 (Version 2)
Quarter: 2013Q4

REPORT INFORMATION
  Report Type: Spontaneous
  Country: US (occurrence: US)
  Receive Date: 20120917
  Receipt Date: 20131101
  Transmission Date: 20140711
  Serious: No
  Sender: FDA-Public Use
  Company Number: US-009507513-1208USA003401

PATIENT
  Age: 57 Year
  Sex: Female
  Weight: 61.22 kg

DRUGS (9)
  1. VICTRELIS [Suspect]
     Dosage: 4 DF, TID
     Route: 048
  2. PEGASYS [Suspect]
     Dosage: PROCLICK
  3. REBETOL [Suspect]
  4. BENADRYL [Concomitant]
  5. TYLENOL [Concomitant]
  6. CALCIUM (UNSPECIFIED) [Concomitant]
     Dosage: 500 UNK
  7. CHOLECALCIFEROL [Concomitant]
  8. BIOTIN [Concomitant]
     Dosage: 5000 UNK
  9. CRANBERRY [Concomitant]

REACTIONS (7)
  - Influenza [Recovered/Resolved]
  - Haemoglobin decreased [Unknown]
  - Irritability [Unknown]
  - Dysgeusia [Unknown]
  - Injection site erythema [Unknown]
  - Oropharyngeal pain [Recovered/Resolved]
  - Pain [Recovered/Resolved]
